FAERS Safety Report 24371362 (Version 1)
Quarter: 2024Q3

REPORT INFORMATION
  Report Type: Spontaneous
  Country: IN (occurrence: IN)
  Receive Date: 20240927
  Receipt Date: 20240927
  Transmission Date: 20241017
  Serious: Yes (Other)
  Sender: SANDOZ
  Company Number: IN-002147023-NVSC2024IN189350

PATIENT
  Sex: Male

DRUGS (2)
  1. MYFORTIC [Suspect]
     Active Substance: MYCOPHENOLATE SODIUM
     Indication: Renal transplant
     Dosage: 360 MG, BID
     Route: 048
  2. TACROLIMUS [Suspect]
     Active Substance: TACROLIMUS
     Indication: Renal transplant
     Dosage: 1.0 MG, BID, (OTHER DOSAGE: 1.5 MG)
     Route: 048

REACTIONS (7)
  - Mitral valve incompetence [Unknown]
  - Type 2 diabetes mellitus [Unknown]
  - Ejection fraction abnormal [Unknown]
  - Cardiac septal hypertrophy [Unknown]
  - Vertigo [Unknown]
  - Pain in extremity [Unknown]
  - Hypertension [Unknown]

NARRATIVE: CASE EVENT DATE: 20230807
